FAERS Safety Report 5117485-8 (Version None)
Quarter: 2006Q3

REPORT INFORMATION
  Report Type: 
  Country: None (occurrence: None)
  Receive Date: 20060929
  Receipt Date: 20060302
  Transmission Date: 20061208
  Serious: Yes (Death, Hospitalization)
  Sender: FDA-Public Use
  Company Number: GBWYE443202MAR06

PATIENT
  Age: 71 Year
  Sex: Female
  Weight: 79 kg

DRUGS (4)
  1. ENBREL [Suspect]
     Indication: RHEUMATOID ARTHRITIS
     Route: 058
     Dates: start: 20051212
  2. REMICADE [Suspect]
     Indication: RHEUMATOID ARTHRITIS
     Route: 042
     Dates: start: 20030113, end: 20051122
  3. METHOTREXATE [Concomitant]
     Route: 065
     Dates: start: 19990101
  4. PREDNISOLONE [Concomitant]
     Route: 048

REACTIONS (2)
  - LUNG CANCER METASTATIC [None]
  - PLEURAL EFFUSION [None]
